FAERS Safety Report 7991083-0 (Version None)
Quarter: 2011Q4

REPORT INFORMATION
  Report Type: 
  Country: None (occurrence: None)
  Receive Date: 20111219
  Receipt Date: 20111215
  Transmission Date: 20120403
  Serious: Yes (Other)
  Sender: FDA-Public Use
  Company Number: US-ROCHE-802068

PATIENT
  Sex: Female

DRUGS (3)
  1. PEGASYS [Suspect]
     Indication: HEPATITIS C
     Route: 058
  2. RIBAVIRIN [Suspect]
     Indication: HEPATITIS C
     Dosage: 600 IN MORNING AND 400 IN EVENING
     Route: 048
  3. TELAPREVIR [Suspect]
     Indication: HEPATITIS C
     Dosage: DRUG NAME: ^INCIVEK^
     Route: 065

REACTIONS (13)
  - HEADACHE [None]
  - EYE PAIN [None]
  - ANAEMIA [None]
  - ADVERSE DRUG REACTION [None]
  - SWOLLEN TONGUE [None]
  - SINUS CONGESTION [None]
  - SYNCOPE [None]
  - CHOKING SENSATION [None]
  - DYSPNOEA [None]
  - PYREXIA [None]
  - PHARYNGEAL OEDEMA [None]
  - DRY THROAT [None]
  - DYSPHONIA [None]
